FAERS Safety Report 4404173-6 (Version None)
Quarter: 2004Q3

REPORT INFORMATION
  Report Type: 
  Country: None (occurrence: None)
  Receive Date: 20040719
  Receipt Date: 20040713
  Transmission Date: 20050211
  Serious: Yes (Death, Other)
  Sender: FDA-Public Use
  Company Number: 200410544BCA

PATIENT
  Age: 59 Year
  Sex: Male

DRUGS (4)
  1. CIPROFLOXACIN [Suspect]
     Dosage: ORAL
     Route: 048
  2. ASACOL [Concomitant]
  3. FLAGYL [Concomitant]
  4. PREDNISONE [Concomitant]

REACTIONS (6)
  - ANOREXIA [None]
  - COAGULOPATHY [None]
  - DIARRHOEA [None]
  - FATIGUE [None]
  - HEPATIC FUNCTION ABNORMAL [None]
  - PYREXIA [None]
